FAERS Safety Report 7897027-4 (Version None)
Quarter: 2011Q4

REPORT INFORMATION
  Report Type: 
  Country: None (occurrence: None)
  Receive Date: 20111104
  Receipt Date: 20111104
  Transmission Date: 20120403
  Serious: Yes (Hospitalization, Disabling)
  Sender: FDA-Public Use
  Company Number: None

PATIENT
  Age: 76 Year
  Sex: Female
  Weight: 65.7716 kg

DRUGS (1)
  1. CRESTOR [Suspect]
     Indication: BLOOD CHOLESTEROL
     Dosage: 10 MG TAB ONE/DAY
     Dates: end: 20110314

REACTIONS (9)
  - PAIN IN EXTREMITY [None]
  - CONTUSION [None]
  - BACK DISORDER [None]
  - ABASIA [None]
  - HIP FRACTURE [None]
  - MUSCULAR WEAKNESS [None]
  - SPINAL DISORDER [None]
  - FALL [None]
  - OVERDOSE [None]
